FAERS Safety Report 17624659 (Version 3)
Quarter: 2020Q3

REPORT INFORMATION
  Report Type: Spontaneous
  Country: US (occurrence: US)
  Receive Date: 20200403
  Receipt Date: 20200714
  Transmission Date: 20201102
  Serious: No
  Sender: FDA-Public Use
  Company Number: US-009507513-2004USA000735

PATIENT
  Age: 57 Year
  Sex: Female

DRUGS (1)
  1. STROMECTOL [Suspect]
     Active Substance: IVERMECTIN
     Indication: SKIN DISORDER
     Dosage: 4 TABLETS ON DAY ONE AND REPEAT 14 DAYS LATER
     Route: 048
     Dates: start: 20190913

REACTIONS (4)
  - Skin disorder [Not Recovered/Not Resolved]
  - Nail disorder [Recovering/Resolving]
  - Foot fracture [Not Recovered/Not Resolved]
  - Drug ineffective [Not Recovered/Not Resolved]

NARRATIVE: CASE EVENT DATE: 20190913
